FAERS Safety Report 23495001 (Version 1)
Quarter: 2024Q1

REPORT INFORMATION
  Report Type: Spontaneous
  Country: US (occurrence: US)
  Receive Date: 20240207
  Receipt Date: 20240207
  Transmission Date: 20240410
  Serious: Yes (Hospitalization, Other)
  Sender: FDA-Public Use
  Company Number: US-BIOGENIDEC-2015BI069561

PATIENT
  Age: 34 Year
  Sex: Female

DRUGS (1)
  1. TYSABRI [Suspect]
     Active Substance: NATALIZUMAB
     Indication: Multiple sclerosis
     Route: 050
     Dates: start: 20140813, end: 20150220

REACTIONS (6)
  - Multiple sclerosis relapse [Recovered/Resolved]
  - Anaphylactic reaction [Unknown]
  - Malaise [Unknown]
  - Central nervous system lesion [Unknown]
  - Hypersensitivity [Recovered/Resolved]
  - Multiple allergies [Unknown]

NARRATIVE: CASE EVENT DATE: 20140901
